FAERS Safety Report 6179489-6 (Version None)
Quarter: 2009Q2

REPORT INFORMATION
  Report Type: 
  Country: None (occurrence: None)
  Receive Date: 20090505
  Receipt Date: 20090423
  Transmission Date: 20091009
  Serious: Yes (Other)
  Sender: FDA-Public Use
  Company Number: DE-ROCHE-615328

PATIENT
  Sex: Female
  Weight: 70 kg

DRUGS (1)
  1. BONIVA [Suspect]
     Indication: OSTEOPOROSIS
     Dosage: SECOND APPLICATION ON 13 JAN 2009
     Route: 042
     Dates: start: 20081017, end: 20090113

REACTIONS (7)
  - HYPOAESTHESIA [None]
  - HYPOAESTHESIA FACIAL [None]
  - HYPOAESTHESIA ORAL [None]
  - OEDEMA MOUTH [None]
  - PAIN IN JAW [None]
  - SWELLING [None]
  - TOOTHACHE [None]
